FAERS Safety Report 15813769 (Version 3)
Quarter: 2019Q3

REPORT INFORMATION
  Report Type: Spontaneous
  Country: JP (occurrence: JP)
  Receive Date: 20190111
  Receipt Date: 20190829
  Transmission Date: 20191004
  Serious: Yes (Other)
  Sender: FDA-Public Use
  Company Number: JP-PFIZER INC-2018468602

PATIENT
  Age: 35 Year
  Sex: Female

DRUGS (12)
  1. EFFEXOR [Suspect]
     Active Substance: VENLAFAXINE HYDROCHLORIDE
     Dosage: 37.5 MG, 2X/DAY
     Route: 048
     Dates: start: 201811
  2. STRATTERA [Concomitant]
     Active Substance: ATOMOXETINE HYDROCHLORIDE
     Indication: AUTONOMIC NERVOUS SYSTEM IMBALANCE
     Dosage: 40 MG, 2X/DAY
     Route: 048
     Dates: start: 20140911, end: 20190218
  3. LANSOPRAZOLE. [Concomitant]
     Active Substance: LANSOPRAZOLE
     Indication: ABDOMINAL DISCOMFORT
     Dosage: 15 MG, 1X/DAY
     Route: 048
     Dates: start: 20160408, end: 20190225
  4. EFFEXOR [Suspect]
     Active Substance: VENLAFAXINE HYDROCHLORIDE
     Dosage: 75 MG, 1X/DAY
     Route: 048
     Dates: start: 20181101, end: 20181104
  5. XYZAL [Concomitant]
     Active Substance: LEVOCETIRIZINE DIHYDROCHLORIDE
     Indication: PRURITUS
     Dosage: 5 MG, 1X/DAY
     Route: 048
     Dates: start: 20150627, end: 20181203
  6. LUNESTA [Concomitant]
     Active Substance: ESZOPICLONE
     Indication: INSOMNIA
     Dosage: 3 MG, 1X/DAY
     Route: 048
     Dates: start: 20180607, end: 20190506
  7. EFFEXOR [Suspect]
     Active Substance: VENLAFAXINE HYDROCHLORIDE
     Dosage: 112.5 MG, 1X/DAY
     Route: 048
     Dates: start: 20181105, end: 20181106
  8. DIAMOX SEQUELS [Concomitant]
     Active Substance: ACETAZOLAMIDE
     Indication: PREMENSTRUAL SYNDROME
     Dosage: 250 MG, 1X/DAY
     Route: 048
     Dates: start: 20181025, end: 20181101
  9. DANTRIUM [Concomitant]
     Active Substance: DANTROLENE SODIUM
     Indication: MUSCULOSKELETAL STIFFNESS
     Dosage: 25 MG, 1X/DAY
     Route: 048
     Dates: start: 20181011, end: 20190102
  10. DANTRIUM [Concomitant]
     Active Substance: DANTROLENE SODIUM
     Indication: MUSCULOSKELETAL STIFFNESS
  11. EFFEXOR [Suspect]
     Active Substance: VENLAFAXINE HYDROCHLORIDE
     Indication: AUTONOMIC NERVOUS SYSTEM IMBALANCE
     Dosage: 37.5 MG, 1X/DAY
     Route: 048
     Dates: start: 20181025, end: 20181031
  12. DIAZEPAM AMEL [Concomitant]
     Indication: INSOMNIA
     Dosage: 5 MG, 1X/DAY
     Route: 048
     Dates: start: 20181011, end: 20181108

REACTIONS (19)
  - Autonomic neuropathy [Unknown]
  - Hot flush [Unknown]
  - Pain in extremity [Recovered/Resolved]
  - Malaise [Not Recovered/Not Resolved]
  - Myalgia [Recovering/Resolving]
  - Accommodation disorder [Unknown]
  - Paraesthesia [Recovered/Resolved]
  - Chills [Unknown]
  - Musculoskeletal stiffness [Recovered/Resolved]
  - Hypoaesthesia [Unknown]
  - Spinal pain [Not Recovered/Not Resolved]
  - Increased appetite [Unknown]
  - Headache [Recovered/Resolved]
  - Poor quality sleep [Unknown]
  - Diarrhoea [Unknown]
  - Insomnia [Not Recovered/Not Resolved]
  - Nausea [Unknown]
  - Pruritus [Recovered/Resolved]
  - Hyperhidrosis [Recovered/Resolved]

NARRATIVE: CASE EVENT DATE: 2018
